FAERS Safety Report 15806748 (Version 1)
Quarter: 2019Q1

REPORT INFORMATION
  Report Type: Spontaneous
  Country: US (occurrence: US)
  Receive Date: 20190110
  Receipt Date: 20190110
  Transmission Date: 20190417
  Serious: No
  Sender: FDA-Public Use
  Company Number: US-VIIV HEALTHCARE LIMITED-US2019001604

PATIENT
  Sex: Male

DRUGS (4)
  1. MAGNESIUM [Concomitant]
     Active Substance: MAGNESIUM
  2. ZINC. [Concomitant]
     Active Substance: ZINC
  3. CALCIUM [Concomitant]
     Active Substance: CALCIUM
  4. TRIUMEQ [Suspect]
     Active Substance: ABACAVIR SULFATE\DOLUTEGRAVIR SODIUM\LAMIVUDINE

REACTIONS (3)
  - Mobility decreased [Unknown]
  - Arthralgia [Unknown]
  - Vitamin D deficiency [Unknown]
